FAERS Safety Report 5545213-0 (Version None)
Quarter: 2007Q4

REPORT INFORMATION
  Report Type: 
  Country: None (occurrence: None)
  Receive Date: 20071123
  Receipt Date: 20070525
  Transmission Date: 20080405
  Serious: Yes (Disabling)
  Sender: FDA-Public Use
  Company Number: US-JNJFOC-20070205954

PATIENT
  Age: 38 Year
  Sex: Female
  Weight: 53.978 kg

DRUGS (1)
  1. LEVAQUIN [Suspect]
     Indication: CAT SCRATCH DISEASE
     Dosage: 750 MG, 1 IN 1 DAY, ORAL
     Route: 048
     Dates: start: 20031213, end: 20031218

REACTIONS (1)
  - MUSCLE INJURY [None]
